FAERS Safety Report 18335959 (Version 1)
Quarter: 2020Q4

REPORT INFORMATION
  Report Type: Spontaneous
  Country: IE (occurrence: IE)
  Receive Date: 20201001
  Receipt Date: 20201001
  Transmission Date: 20210113
  Serious: Yes (Other)
  Sender: FDA-Public Use
  Company Number: IE-SAMSUNG BIOEPIS-SB-2020-29302

PATIENT
  Age: 39 Year
  Sex: Male

DRUGS (2)
  1. IMRALDI [Suspect]
     Active Substance: ADALIMUMAB
     Indication: PSORIATIC ARTHROPATHY
  2. IMRALDI [Suspect]
     Active Substance: ADALIMUMAB
     Indication: PSORIASIS
     Dosage: 10 PENS ALREADY USED
     Route: 058
     Dates: start: 201910

REACTIONS (8)
  - Product use issue [Unknown]
  - Injection site pain [Recovered/Resolved]
  - Discomfort [Recovered/Resolved]
  - Product substitution issue [Unknown]
  - Administration site bruise [Recovered/Resolved]
  - Treatment noncompliance [Unknown]
  - Product use complaint [Unknown]
  - Injection site swelling [Recovered/Resolved]
